FAERS Safety Report 4594980-1 (Version None)
Quarter: 2005Q1

REPORT INFORMATION
  Report Type: 
  Country: None (occurrence: None)
  Receive Date: 20050224
  Receipt Date: 20030707
  Transmission Date: 20050727
  Serious: Yes (Hospitalization)
  Sender: FDA-Public Use
  Company Number: GXKR2003GB00640

PATIENT
  Age: 59 Year
  Sex: Female

DRUGS (4)
  1. TRIMETHOPRIM [Suspect]
     Indication: URINARY TRACT INFECTION
     Dosage: 200 MG, BID, ORAL
     Route: 048
     Dates: start: 20030531, end: 20030601
  2. MIRTAZAPINE [Concomitant]
  3. MELOXICAM [Concomitant]
  4. PANTOPRAZOLE                   (PANTOPRAZOLE) [Concomitant]

REACTIONS (7)
  - ASTHENIA [None]
  - BACK PAIN [None]
  - BLOOD PRESSURE DECREASED [None]
  - HEADACHE [None]
  - HYPERSENSITIVITY [None]
  - PHOTOSENSITIVITY REACTION [None]
  - PYREXIA [None]
